FAERS Safety Report 4700085-9 (Version None)
Quarter: 2005Q2

REPORT INFORMATION
  Report Type: 
  Country: None (occurrence: None)
  Receive Date: 20050623
  Receipt Date: 20050609
  Transmission Date: 20051028
  Serious: Yes (Hospitalization)
  Sender: FDA-Public Use
  Company Number: 200415749BCC

PATIENT
  Age: 81 Year
  Sex: Male
  Weight: 120.2032 kg

DRUGS (10)
  1. ALEVE [Suspect]
     Indication: DEMENTIA ALZHEIMER'S TYPE
     Dosage: BID, ORAL
     Route: 048
     Dates: start: 20030806, end: 20040210
  2. ALEVE [Suspect]
     Indication: PROPHYLAXIS
     Dosage: BID, ORAL
     Route: 048
     Dates: start: 20030806, end: 20040210
  3. ALEVE [Suspect]
     Indication: DEMENTIA ALZHEIMER'S TYPE
     Dosage: BID, ORAL
     Route: 048
     Dates: start: 20040301, end: 20041026
  4. ALEVE [Suspect]
     Indication: PROPHYLAXIS
     Dosage: BID, ORAL
     Route: 048
     Dates: start: 20040301, end: 20041026
  5. ENALAPRIL MALEATE [Concomitant]
  6. CRANBERRY [Concomitant]
  7. COENZYME Q10 [Concomitant]
  8. OCUVITE [Concomitant]
  9. NISULIN [Concomitant]
  10. METFORMIN [Concomitant]

REACTIONS (8)
  - ANAEMIA [None]
  - CELLULITIS [None]
  - DIABETIC COMPLICATION [None]
  - DIVERTICULUM INTESTINAL [None]
  - GASTROINTESTINAL HAEMORRHAGE [None]
  - IMPAIRED HEALING [None]
  - SHOULDER PAIN [None]
  - WHITE BLOOD CELL COUNT INCREASED [None]
